FAERS Safety Report 6150069-1 (Version None)
Quarter: 2009Q2

REPORT INFORMATION
  Report Type: 
  Country: None (occurrence: None)
  Receive Date: 20090407
  Receipt Date: 20090407
  Transmission Date: 20091009
  Serious: No
  Sender: FDA-Public Use
  Company Number: None

PATIENT
  Age: 43 Year
  Sex: Male
  Weight: 73.9363 kg

DRUGS (2)
  1. PROMACTA [Suspect]
     Indication: HEPATITIS C
     Dates: start: 20090130
  2. PROMACTA [Suspect]
     Indication: PLATELET COUNT DECREASED
     Dates: start: 20090130

REACTIONS (5)
  - ABDOMINAL DISTENSION [None]
  - BACK PAIN [None]
  - DIARRHOEA [None]
  - FLATULENCE [None]
  - NAUSEA [None]
